FAERS Safety Report 11127349 (Version 1)
Quarter: 2015Q2

REPORT INFORMATION
  Report Type: Report from Study
  Country: CN (occurrence: None)
  Receive Date: 20150519
  Receipt Date: 20150519
  Transmission Date: 20150821
  Serious: Yes (Other)
  Sender: FDA-Public Use
  Company Number: 7300334

PATIENT
  Age: 40 Year
  Sex: Female

DRUGS (1)
  1. EUTHYROX 50 MCG (LEVOTHYROXINE SODIUM) (50 MICROGRAM, TABLET) (LEVOTHYROXINE SODIUM) [Suspect]
     Active Substance: LEVOTHYROXINE SODIUM
     Indication: HYPOTHYROIDISM
     Dosage: 1 DF (1 DF, 1 IN 1 D)
     Route: 048
     Dates: start: 20140615

REACTIONS (2)
  - Abortion [None]
  - Maternal exposure during pregnancy [None]
